FAERS Safety Report 21702831 (Version 1)
Quarter: 2022Q4

REPORT INFORMATION
  Report Type: Spontaneous
  Country: CN (occurrence: CN)
  Receive Date: 20221209
  Receipt Date: 20221209
  Transmission Date: 20230112
  Serious: Yes (Other)
  Sender: FDA-Public Use
  Company Number: CN-BoehringerIngelheim-2022-BI-205952

PATIENT
  Age: 92 Year
  Sex: Female

DRUGS (10)
  1. DABIGATRAN ETEXILATE [Suspect]
     Active Substance: DABIGATRAN ETEXILATE
     Indication: Anticoagulant therapy
     Route: 048
  2. DABIGATRAN ETEXILATE [Suspect]
     Active Substance: DABIGATRAN ETEXILATE
     Indication: Atrial fibrillation
     Route: 048
     Dates: end: 20190115
  3. DABIGATRAN ETEXILATE [Suspect]
     Active Substance: DABIGATRAN ETEXILATE
     Route: 048
     Dates: start: 20190115
  4. DABIGATRAN ETEXILATE [Suspect]
     Active Substance: DABIGATRAN ETEXILATE
     Route: 048
     Dates: start: 20190120
  5. FUROSEMIDE [Concomitant]
     Active Substance: FUROSEMIDE
     Indication: Diuretic therapy
     Route: 048
  6. FUROSEMIDE [Concomitant]
     Active Substance: FUROSEMIDE
     Route: 040
     Dates: start: 20190118
  7. SPIRONOLACTONE [Concomitant]
     Active Substance: SPIRONOLACTONE
     Indication: Ventricular remodelling
     Route: 048
     Dates: end: 20190119
  8. Metoprolol Succinate Sustained-release Tablets [Concomitant]
     Indication: Ventricular remodelling
     Route: 048
     Dates: end: 20190119
  9. ATORVASTATIN CALCIUM [Concomitant]
     Active Substance: ATORVASTATIN CALCIUM
     Indication: Product used for unknown indication
  10. Meglumine adenosine cyclophosphate for injection [Concomitant]
     Indication: Product used for unknown indication

REACTIONS (17)
  - Cardiac failure acute [Unknown]
  - Decreased appetite [Unknown]
  - Cyanosis [Unknown]
  - Arrhythmia [Unknown]
  - Tongue discolouration [Unknown]
  - Pulse abnormal [Unknown]
  - Breath sounds abnormal [Unknown]
  - Rales [Unknown]
  - Cardiac murmur [Unknown]
  - Hyperkalaemia [Unknown]
  - Heart rate decreased [Unknown]
  - Gingival bleeding [Recovered/Resolved]
  - Loose tooth [Unknown]
  - Hyperaemia [Unknown]
  - Oedema peripheral [Unknown]
  - Off label use [Unknown]
  - Drug interaction [Unknown]

NARRATIVE: CASE EVENT DATE: 20190118
